FAERS Safety Report 7399684-8 (Version None)
Quarter: 2011Q2

REPORT INFORMATION
  Report Type: 
  Country: None (occurrence: None)
  Receive Date: 20110407
  Receipt Date: 20110405
  Transmission Date: 20111010
  Serious: No
  Sender: FDA-Public Use
  Company Number: US-PFIZER INC-2011075523

PATIENT
  Sex: Male
  Weight: 88.4 kg

DRUGS (3)
  1. ACETAMINOPHEN [Concomitant]
     Dosage: UNK, AS NEEDED
  2. CHANTIX [Suspect]
     Indication: SMOKING CESSATION THERAPY
     Dosage: 0.5 MG, 1X/DAY
     Route: 048
     Dates: start: 20110101
  3. CHANTIX [Suspect]
     Dosage: 1 MG, 2X/DAY
     Route: 048
     Dates: start: 20110101

REACTIONS (6)
  - DISTURBANCE IN ATTENTION [None]
  - FEAR [None]
  - PANIC ATTACK [None]
  - NAUSEA [None]
  - DIARRHOEA [None]
  - ANXIETY [None]
